FAERS Safety Report 8638525 (Version 2)
Quarter: 2012Q4

REPORT INFORMATION
  Report Type: 
  Country: US (occurrence: US)
  Receive Date: 20120627
  Receipt Date: 20121112
  Transmission Date: 20130627
  Serious: Yes (Hospitalization, Other)
  Sender: FDA-Public Use
  Company Number: US-BAYER-2012-062625

PATIENT
  Age: 14 Year
  Sex: Female

DRUGS (13)
  1. YAZ [Suspect]
     Indication: CONTRACEPTION
     Dosage: UNK
     Dates: start: 20010906, end: 200809
  2. YAZ [Suspect]
     Indication: PREMENSTRUAL SYNDROME
  3. TYLENOL [Concomitant]
  4. EFFEXOR XR [Concomitant]
     Dosage: 150 mg, UNK
  5. PHENERGAN [Concomitant]
  6. PREVACID [Concomitant]
     Dosage: 30 mg, each day
     Route: 048
  7. TRAZODONE [Concomitant]
  8. LITHIUM [Concomitant]
     Dosage: 2 tablets each day
     Route: 048
  9. NEXIUM [Concomitant]
     Dosage: 40 mg, each day
  10. AZITHROMYCIN [Concomitant]
     Dosage: 250 mg, UNK
  11. FLEXERIL [Concomitant]
  12. MIRCETTE [Concomitant]
  13. MOBIC [Concomitant]

REACTIONS (7)
  - Cholecystitis chronic [None]
  - Cholelithiasis [None]
  - Injury [None]
  - Pain [None]
  - Vomiting [None]
  - Abdominal pain [None]
  - Diarrhoea [None]
